FAERS Safety Report 22103939 (Version 1)
Quarter: 2023Q1

REPORT INFORMATION
  Report Type: Spontaneous
  Country: US (occurrence: US)
  Receive Date: 20230316
  Receipt Date: 20230316
  Transmission Date: 20230417
  Serious: No
  Sender: FDA-Public Use
  Company Number: US-SMITH AND NEPHEW, INC-2023SMT00004

PATIENT
  Sex: Male

DRUGS (6)
  1. COLLAGENASE SANTYL [Suspect]
     Active Substance: COLLAGENASE CLOSTRIDIUM HISTOLYTICUM
     Indication: Skin ulcer
     Dosage: UNK, APPLIED TO HIS LEG
     Route: 061
     Dates: start: 20230112
  2. COLLAGENASE SANTYL [Suspect]
     Active Substance: COLLAGENASE CLOSTRIDIUM HISTOLYTICUM
     Indication: Skin necrosis
  3. CALCIUM ALGINATE [Suspect]
     Active Substance: CALCIUM ALGINATE
     Indication: Skin ulcer
     Dosage: UNK, APPLIED TO HIS LEG
     Route: 061
     Dates: start: 20230112
  4. CALCIUM ALGINATE [Suspect]
     Active Substance: CALCIUM ALGINATE
     Indication: Skin necrosis
  5. UNSPECIFIED INGREDIENT [Suspect]
     Active Substance: UNSPECIFIED INGREDIENT
     Indication: Skin ulcer
     Dosage: UNK, APPLIED TO HIS LEG
     Route: 061
     Dates: start: 20230112
  6. UNSPECIFIED INGREDIENT [Suspect]
     Active Substance: UNSPECIFIED INGREDIENT
     Indication: Skin necrosis

REACTIONS (1)
  - Application site pain [Not Recovered/Not Resolved]

NARRATIVE: CASE EVENT DATE: 20230115
